FAERS Safety Report 4528541-7 (Version None)
Quarter: 2004Q4

REPORT INFORMATION
  Report Type: 
  Country: None (occurrence: None)
  Receive Date: 20041216
  Receipt Date: 20040903
  Transmission Date: 20050328
  Serious: Yes (Hospitalization)
  Sender: FDA-Public Use
  Company Number: US-BRISTOL-MYERS SQUIBB COMPANY-12693032

PATIENT
  Age: 79 Year
  Sex: Female

DRUGS (11)
  1. TEQUIN [Suspect]
     Indication: INFECTION
     Route: 042
     Dates: start: 20040722, end: 20040725
  2. METRONIDAZOLE [Concomitant]
  3. ACETAMINOPHEN [Concomitant]
  4. MORPHINE [Concomitant]
  5. HYDRALAZINE [Concomitant]
  6. LABETALOL [Concomitant]
  7. ONDANSETRON [Concomitant]
  8. HALOPERIDOL [Concomitant]
  9. IPRATROPIUM BROMIDE [Concomitant]
  10. LEVALBUTEROL HCL [Concomitant]
  11. DEXTROSE 5% 1/2 NORMAL SALINE + KCL [Concomitant]

REACTIONS (4)
  - AGITATION [None]
  - ANXIETY [None]
  - MENTAL STATUS CHANGES [None]
  - RESTLESSNESS [None]
